FAERS Safety Report 5728581-6 (Version None)
Quarter: 2008Q2

REPORT INFORMATION
  Report Type: 
  Country: None (occurrence: None)
  Receive Date: 20080430
  Receipt Date: 20080418
  Transmission Date: 20081010
  Serious: Yes (Hospitalization)
  Sender: FDA-Public Use
  Company Number: 2008-01201

PATIENT
  Age: 72 Year
  Sex: Male
  Weight: 68.5 kg

DRUGS (6)
  1. VELCADE [Suspect]
     Indication: MULTIPLE MYELOMA
     Dosage: 2.3 MG, INTRAVENOUS
     Route: 042
     Dates: start: 20070824, end: 20080331
  2. DEXAMETHASONE TAB [Suspect]
     Indication: MULTIPLE MYELOMA
     Dosage: 20 MG, ORAL
     Route: 048
     Dates: start: 20070824
  3. IRBESARTAN [Concomitant]
  4. ATENOLOL [Concomitant]
  5. ESOMEPRAZOLE (ESOMEPRAZOLE) [Concomitant]
  6. NEXIUM [Concomitant]

REACTIONS (7)
  - DECREASED APPETITE [None]
  - DYSPNOEA [None]
  - FAECAL INCONTINENCE [None]
  - FATIGUE [None]
  - HYPERVENTILATION [None]
  - RESPIRATORY DISORDER [None]
  - URINARY INCONTINENCE [None]
